FAERS Safety Report 9158681 (Version 1)
Quarter: 2013Q1

REPORT INFORMATION
  Report Type: Spontaneous
  Country: US (occurrence: US)
  Receive Date: 20130312
  Receipt Date: 20130312
  Transmission Date: 20140127
  Serious: Yes (Hospitalization)
  Sender: FDA-Public Use
  Company Number: US-PFIZER INC-2013082040

PATIENT
  Age: 50 Year
  Sex: Female
  Weight: 70.3 kg

DRUGS (10)
  1. LYRICA [Suspect]
     Indication: HYPOAESTHESIA
     Dosage: 1 DF, 1X/DAY
     Dates: start: 2011
  2. LYRICA [Suspect]
     Indication: HYPOAESTHESIA
  3. HUMULIN [Suspect]
     Indication: DIABETES MELLITUS
     Dosage: 88 IU, 1X/DAY (20 UNITS IN MORNING, 20 UNITS AT LUNCH TIME AND 48 UNITS AT NIGHT)
  4. LANTUS [Suspect]
     Indication: DIABETES MELLITUS
     Dosage: 96 IU, 1X/DAY
  5. TRILIPIX [Concomitant]
     Dosage: 45 MG, 1X/DAY
  6. PLAVIX [Concomitant]
     Indication: ANTICOAGULANT THERAPY
     Dosage: 75 MG, 1X/DAY
  7. PLAVIX [Concomitant]
     Indication: CARDIAC DISORDER
  8. LIPITOR [Concomitant]
     Indication: BLOOD CHOLESTEROL INCREASED
     Dosage: UNK
  9. ACCUPRIL [Concomitant]
     Indication: CARDIAC DISORDER
     Dosage: 10 MG, 1X/DAY
  10. CYMBALTA [Concomitant]
     Indication: DEPRESSION
     Dosage: 60 MG, 1X/DAY

REACTIONS (2)
  - Blood glucose decreased [Recovered/Resolved]
  - Incorrect dose administered [Recovered/Resolved]
